FAERS Safety Report 8328801-8 (Version None)
Quarter: 2012Q2

REPORT INFORMATION
  Report Type: 
  Country: None (occurrence: None)
  Receive Date: 20120502
  Receipt Date: 20120419
  Transmission Date: 20120825
  Serious: Yes (Other)
  Sender: FDA-Public Use
  Company Number: US-COVIDIEN/TYCO HEALTHCARE/MALLINCKRODT-T201201574

PATIENT
  Sex: Male

DRUGS (3)
  1. FENTANYL CITRATE [Suspect]
     Dosage: 1600 UG/HR, EVERY BEDTIME
     Dates: start: 20100101, end: 20120327
  2. FENTANYL CITRATE [Suspect]
     Indication: PAIN
     Dosage: 1200 UG/HR, DURING THE DAY
     Dates: start: 20100101, end: 20120327
  3. OXYCONTIN [Concomitant]
     Indication: PAIN
     Dosage: 80 MG, 2 TABS TID

REACTIONS (2)
  - FOOD CRAVING [None]
  - WITHDRAWAL SYNDROME [None]
